FAERS Safety Report 5950227-2 (Version None)
Quarter: 2008Q4

REPORT INFORMATION
  Report Type: 
  Country: None (occurrence: None)
  Receive Date: 20081112
  Receipt Date: 20081110
  Transmission Date: 20090506
  Serious: Yes (Death, Hospitalization)
  Sender: FDA-Public Use
  Company Number: D0059402A

PATIENT
  Sex: Female
  Weight: 92 kg

DRUGS (6)
  1. CEFUROXIME [Suspect]
     Indication: URINARY TRACT INFECTION
     Route: 042
     Dates: start: 20070806, end: 20070815
  2. AVELOX [Suspect]
     Dosage: 400MG PER DAY
     Route: 048
     Dates: start: 20070726, end: 20070805
  3. ZYVOXID [Suspect]
     Route: 042
     Dates: start: 20070808, end: 20070816
  4. ASPIRIN [Concomitant]
     Route: 048
     Dates: end: 20070601
  5. INSULIN [Concomitant]
     Route: 065
     Dates: start: 20000101, end: 20070601
  6. MULTIPLE MEDICATION [Concomitant]

REACTIONS (2)
  - HEPATIC FAILURE [None]
  - HEPATITIS ACUTE [None]
